FAERS Safety Report 4582833-4 (Version None)
Quarter: 2005Q1

REPORT INFORMATION
  Report Type: 
  Country: None (occurrence: None)
  Receive Date: 20050121
  Receipt Date: 20041011
  Transmission Date: 20050727
  Serious: Yes (Other)
  Sender: FDA-Public Use
  Company Number: 2004081258

PATIENT
  Sex: Female

DRUGS (1)
  1. RELPAX [Suspect]
     Indication: ILL-DEFINED DISORDER

REACTIONS (1)
  - ILL-DEFINED DISORDER [None]
